FAERS Safety Report 6679392-9 (Version None)
Quarter: 2010Q2

REPORT INFORMATION
  Report Type: 
  Country: None (occurrence: None)
  Receive Date: 20100413
  Receipt Date: 20100407
  Transmission Date: 20101027
  Serious: Yes (Other)
  Sender: FDA-Public Use
  Company Number: BE-ROCHE-693565

PATIENT
  Age: 65 Year
  Sex: Female
  Weight: 72 kg

DRUGS (1)
  1. HERCEPTIN [Suspect]
     Indication: BREAST CANCER
     Route: 042
     Dates: start: 20091007, end: 20100402

REACTIONS (3)
  - IMPAIRED HEALING [None]
  - INFLUENZA LIKE ILLNESS [None]
  - RECALL PHENOMENON [None]
